FAERS Safety Report 5386506-X (Version None)
Quarter: 2007Q3

REPORT INFORMATION
  Report Type: 
  Country: None (occurrence: None)
  Receive Date: 20070713
  Receipt Date: 20070630
  Transmission Date: 20080115
  Serious: Yes (Other)
  Sender: FDA-Public Use
  Company Number: US-ELI_LILLY_AND_COMPANY-US200706003703

PATIENT
  Age: 77 Year
  Sex: Female

DRUGS (10)
  1. FORTEO [Suspect]
     Indication: OSTEOPOROSIS
     Dosage: UNK, UNK
     Dates: start: 20070301, end: 20070101
  2. ZOCOR [Concomitant]
     Dosage: 10 MG, 5/W
     Dates: start: 20060801, end: 20070501
  3. SECTRAL [Concomitant]
     Dosage: 200 MG, UNK
  4. TIAZAC [Concomitant]
     Dosage: 120 MG, UNK
  5. QUINAPRIL [Concomitant]
     Dosage: 40 MG, UNK
  6. SYNTHROID [Concomitant]
     Dosage: 0.015 MG, UNK
  7. HYDROCHLOROTHIAZIDE [Concomitant]
     Dosage: 12.5 MG, UNK
  8. AMBIEN [Concomitant]
     Dosage: UNK, AS NEEDED
  9. TRAZODONE HCL [Concomitant]
     Dosage: UNK, AS NEEDED
  10. VICODIN [Concomitant]
     Dosage: UNK, AS NEEDED

REACTIONS (2)
  - DRUG INTERACTION [None]
  - HEPATIC ENZYME INCREASED [None]
